FAERS Safety Report 15841402 (Version 2)
Quarter: 2019Q2

REPORT INFORMATION
  Report Type: Report from Study
  Country: US (occurrence: US)
  Receive Date: 20190118
  Receipt Date: 20190401
  Transmission Date: 20190711
  Serious: Yes (Disabling, Other)
  Sender: FDA-Public Use
  Company Number: US-SAKK-2019SA009930AA

PATIENT
  Age: 56 Year
  Sex: Female

DRUGS (1)
  1. INSULIN GLARGINE [Suspect]
     Active Substance: INSULIN GLARGINE
     Indication: TYPE 2 DIABETES MELLITUS
     Dosage: 50 U, QD
     Route: 058
     Dates: start: 2005, end: 201810

REACTIONS (11)
  - Thrombosis [Not Recovered/Not Resolved]
  - Malaise [Recovering/Resolving]
  - Cough [Not Recovered/Not Resolved]
  - Product dose omission [Unknown]
  - Arteriosclerosis [Not Recovered/Not Resolved]
  - Diabetes mellitus [Unknown]
  - Fungal infection [Recovering/Resolving]
  - Productive cough [Not Recovered/Not Resolved]
  - Gastric disorder [Unknown]
  - Blood glucose increased [Recovered/Resolved]
  - Gastrooesophageal reflux disease [Not Recovered/Not Resolved]

NARRATIVE: CASE EVENT DATE: 201810
